FAERS Safety Report 6194292-9 (Version None)
Quarter: 2009Q2

REPORT INFORMATION
  Report Type: 
  Country: None (occurrence: None)
  Receive Date: 20090519
  Receipt Date: 20090506
  Transmission Date: 20091009
  Serious: Yes (Hospitalization)
  Sender: FDA-Public Use
  Company Number: ES-BRISTOL-MYERS SQUIBB COMPANY-14603989

PATIENT
  Age: 44 Year
  Sex: Female

DRUGS (2)
  1. CYCLOPHOSPHAMIDE [Suspect]
     Indication: BREAST CANCER
     Dosage: START DATE : 30-JAN-09; INTERRUPTED ON 01APR09
     Route: 042
     Dates: start: 20090401, end: 20090401
  2. ADRIAMYCIN RDF [Suspect]
     Indication: BREAST CANCER
     Dosage: START DATE: 30-JAN-09;INTERRUPTED ON 01APR09
     Route: 042
     Dates: start: 20090401, end: 20090401

REACTIONS (5)
  - CYTOLOGY ABNORMAL [None]
  - DYSPNOEA [None]
  - INFLAMMATION [None]
  - LUNG INFILTRATION [None]
  - PYREXIA [None]
